FAERS Safety Report 17489989 (Version 1)
Quarter: 2020Q1

REPORT INFORMATION
  Report Type: Spontaneous
  Country: US (occurrence: US)
  Receive Date: 20200303
  Receipt Date: 20200303
  Transmission Date: 20200409
  Serious: No
  Sender: FDA-Public Use
  Company Number: US-AKORN PHARMACEUTICALS-2019AKN01811

PATIENT
  Sex: Female

DRUGS (3)
  1. MYORISAN [Suspect]
     Active Substance: ISOTRETINOIN
     Dosage: UNK
     Dates: start: 20190627, end: 201908
  2. MYORISAN [Suspect]
     Active Substance: ISOTRETINOIN
     Dosage: UNK
     Dates: start: 20190316, end: 2019
  3. MYORISAN [Suspect]
     Active Substance: ISOTRETINOIN
     Dosage: UNK
     Dates: start: 20190418, end: 2019

REACTIONS (2)
  - Amnesia [Unknown]
  - Back pain [Unknown]

NARRATIVE: CASE EVENT DATE: 2019
